FAERS Safety Report 6372621-0 (Version None)
Quarter: 2009Q3

REPORT INFORMATION
  Report Type: 
  Country: None (occurrence: None)
  Receive Date: 20090922
  Receipt Date: 20090922
  Transmission Date: 20100115
  Serious: Yes (Life-Threatening, Hospitalization)
  Sender: FDA-Public Use
  Company Number: None

PATIENT

DRUGS (2)
  1. DILANTIN [Suspect]
     Indication: CONVULSION
     Dosage: 250 MG 5 PID Q DAY PO
     Route: 048
     Dates: start: 19970101
  2. DEPAKOTE [Suspect]
     Indication: CONVULSION
     Dosage: 250 MG 6 PID Q DAY PO
     Route: 048
     Dates: start: 19970101

REACTIONS (2)
  - CONVULSION [None]
  - PRODUCT SUBSTITUTION ISSUE [None]
